FAERS Safety Report 11236632 (Version 4)
Quarter: 2015Q4

REPORT INFORMATION
  Report Type: Report from Study
  Country: AU (occurrence: AU)
  Receive Date: 20150702
  Receipt Date: 20151007
  Transmission Date: 20160304
  Serious: Yes (Other)
  Sender: FDA-Public Use
  Company Number: AU-AMGEN-AUSCT2015064437

PATIENT
  Age: 50 Year
  Sex: Female
  Weight: 97 kg

DRUGS (9)
  1. BIOTENE                            /03475601/ [Concomitant]
     Dosage: 15 ML, UNK
     Route: 048
     Dates: start: 20120630
  2. SALT [Concomitant]
     Active Substance: SODIUM CHLORIDE
     Dosage: 20 ML, UNK
     Route: 048
     Dates: start: 20120730
  3. ENDONE [Concomitant]
     Active Substance: OXYCODONE HYDROCHLORIDE
     Dosage: UNK
     Dates: start: 20150606
  4. PANADEINE                          /00116401/ [Concomitant]
     Active Substance: ACETAMINOPHEN\CODEINE PHOSPHATE
     Dosage: UNK
     Dates: start: 20150606, end: 20150630
  5. VITAMIN D                          /00107901/ [Concomitant]
     Active Substance: ERGOCALCIFEROL
     Dosage: 1000 IU, UNK
     Route: 048
     Dates: start: 20120618
  6. CALCIUM [Concomitant]
     Active Substance: CALCIUM
     Dosage: 1200 MG, UNK
     Route: 048
     Dates: start: 20120618
  7. DENOSUMAB [Suspect]
     Active Substance: DENOSUMAB
     Indication: BREAST CANCER
     Dosage: 120 MG, UNK
     Route: 058
     Dates: start: 20120618
  8. MENTHOL. [Concomitant]
     Active Substance: MENTHOL
     Dosage: 5 UNK, UNK
     Route: 061
     Dates: start: 20121014
  9. LASIX [Concomitant]
     Active Substance: FUROSEMIDE
     Dosage: 40 MG, UNK
     Route: 048
     Dates: start: 20121022

REACTIONS (1)
  - Femoral neck fracture [Not Recovered/Not Resolved]

NARRATIVE: CASE EVENT DATE: 20150528
